FAERS Safety Report 15146068 (Version 1)
Quarter: 2018Q3

REPORT INFORMATION
  Report Type: Spontaneous
  Country: JP (occurrence: JP)
  Receive Date: 20180714
  Receipt Date: 20180714
  Transmission Date: 20181010
  Serious: Yes (Other)
  Sender: FDA-Public Use
  Company Number: JP-FRESENIUS KABI-FK201807814

PATIENT
  Age: 58 Year
  Sex: Female

DRUGS (6)
  1. HEPARIN SODIUM (MANUFACTURER UNKNOWN) [Suspect]
     Active Substance: HEPARIN SODIUM
     Indication: PRODUCT USED FOR UNKNOWN INDICATION
     Route: 042
  2. PROPOFOL. [Concomitant]
     Active Substance: PROPOFOL
     Indication: ANAESTHESIA
     Dosage: UNKNOWN
     Route: 065
  3. ACETYLSALICYLIC ACID [Suspect]
     Active Substance: ASPIRIN
     Indication: THROMBOSIS PROPHYLAXIS
     Route: 065
  4. CLOPIDOGREL [Suspect]
     Active Substance: CLOPIDOGREL BISULFATE
     Indication: THROMBOSIS PROPHYLAXIS
     Route: 065
  5. PRASUGREL. [Suspect]
     Active Substance: PRASUGREL
     Indication: THROMBOSIS PROPHYLAXIS
     Dosage: 3,75 MG
     Route: 065
  6. NO DRUG NAME [Concomitant]
     Indication: ANAESTHESIA
     Dosage: UNKNOWN
     Route: 065

REACTIONS (1)
  - Oesophageal intramural haematoma [Unknown]
